FAERS Safety Report 16807617 (Version 20)
Quarter: 2022Q4

REPORT INFORMATION
  Report Type: Report from Study
  Country: US (occurrence: None)
  Receive Date: 20190914
  Receipt Date: 20221102
  Transmission Date: 20230113
  Serious: Yes (Hospitalization)
  Sender: FDA-Public Use
  Company Number: US-ROCHE-2369790

PATIENT
  Age: 75 Year
  Sex: Female
  Weight: 55.1 kg

DRUGS (38)
  1. POLATUZUMAB VEDOTIN [Suspect]
     Active Substance: POLATUZUMAB VEDOTIN
     Indication: Diffuse large B-cell lymphoma
     Dosage: MOST RECENT DOSE PRIOR TO SAE/AE ONSET ON 26/AUG/2019 ?MOST RECENT DOSE PRIOR TO SAE/AE ONSET ON 22/
     Route: 042
     Dates: start: 20190610
  2. PLACEBO [Suspect]
     Active Substance: UNSPECIFIED INGREDIENT
     Indication: Diffuse large B-cell lymphoma
     Dosage: MOST RECENT DOSE PRIOR TO AE/SAE ONSET ON 27/AUG/2019?MOST RECENT DOSE PRIOR TO AE/SAE ONSET ON 23/J
     Route: 042
     Dates: start: 20190610
  3. RITUXIMAB [Suspect]
     Active Substance: RITUXIMAB
     Indication: Diffuse large B-cell lymphoma
     Dosage: DATE OF MOST RECENT DOSE 577 MG OF RITUXIMAB PRIOR TO SAE/AE ONSET: 26/AUG/2019?DATE OF MOST RECENT
     Route: 042
     Dates: start: 20190610
  4. DOXORUBICIN [Suspect]
     Active Substance: DOXORUBICIN
     Indication: Diffuse large B-cell lymphoma
     Dosage: DATE OF MOST RECENT DOSE 58 MG OF DOXORUBICIN PRIOR TO SAE/AE ONSET:27/AUG/2019?DATE OF MOST RECENT
     Route: 042
     Dates: start: 20190611
  5. CYCLOPHOSPHAMIDE [Suspect]
     Active Substance: CYCLOPHOSPHAMIDE
     Indication: Diffuse large B-cell lymphoma
     Dosage: DATE OF MOST RECENT DOSE 578 MG OF CYCLOPHOSPHAMIDE PRIOR TO SAE/AE ONSET:27/AUG/2019?DATE OF MOST R
     Route: 042
     Dates: start: 20190611
  6. PREDNISONE [Suspect]
     Active Substance: PREDNISONE
     Indication: Diffuse large B-cell lymphoma
     Dosage: DATE OF MOST RECENT DOSE OF PREDNISONE PRIOR TO SAE/AE ONSET: 30/AUG/2019 (100 MG)?DATE OF MOST RECE
     Route: 048
     Dates: start: 20190610
  7. VITAMIN C [Concomitant]
     Active Substance: ASCORBIC ACID
     Route: 048
  8. DONEPEZIL [Concomitant]
     Active Substance: DONEPEZIL
     Indication: Dementia
     Route: 048
  9. LASIX [Concomitant]
     Active Substance: FUROSEMIDE
     Indication: Oedema peripheral
     Route: 048
  10. LIPITOR [Concomitant]
     Active Substance: ATORVASTATIN CALCIUM
     Indication: Blood cholesterol increased
     Route: 048
  11. ELIQUIS [Concomitant]
     Active Substance: APIXABAN
     Dates: start: 20190612
  12. DILTIAZEM [Concomitant]
     Active Substance: DILTIAZEM
     Indication: Hypertension
     Route: 048
  13. PEPCID [Concomitant]
     Active Substance: FAMOTIDINE
     Indication: Gastrooesophageal reflux disease
     Route: 048
  14. METOPROLOL [Concomitant]
     Active Substance: METOPROLOL
     Indication: Hypertension
     Route: 048
  15. BACTRIM [Concomitant]
     Active Substance: SULFAMETHOXAZOLE\TRIMETHOPRIM
     Route: 048
     Dates: start: 20190610
  16. ACYCLOVIR [Concomitant]
     Active Substance: ACYCLOVIR
     Route: 048
     Dates: start: 20190904
  17. ACYCLOVIR [Concomitant]
     Active Substance: ACYCLOVIR
     Route: 048
     Dates: start: 20190610, end: 20190904
  18. ZOFRAN [Concomitant]
     Active Substance: ONDANSETRON HYDROCHLORIDE
     Route: 048
     Dates: start: 20190610, end: 20190827
  19. COMPAZINE [Concomitant]
     Active Substance: PROCHLORPERAZINE MALEATE
     Route: 048
     Dates: start: 20190610
  20. PLASMALYTE A [Concomitant]
  21. HUMAN RED BLOOD CELL [Concomitant]
     Active Substance: HUMAN RED BLOOD CELL
  22. MEPRON (UNITED STATES) [Concomitant]
     Route: 042
     Dates: start: 20190731, end: 20190804
  23. MEPRON (UNITED STATES) [Concomitant]
     Route: 048
     Dates: start: 20190610
  24. SODIUM CHLORIDE [Concomitant]
     Active Substance: SODIUM CHLORIDE
     Indication: Diarrhoea
     Route: 042
     Dates: start: 20190704
  25. SODIUM CHLORIDE [Concomitant]
     Active Substance: SODIUM CHLORIDE
     Route: 042
     Dates: start: 20190819, end: 20190819
  26. FLUCONAZOLE [Concomitant]
     Active Substance: FLUCONAZOLE
  27. DEXAMETHASONE [Concomitant]
     Active Substance: DEXAMETHASONE
     Indication: Dysphagia
     Route: 048
     Dates: start: 20190801, end: 20190804
  28. TRAMADOL [Concomitant]
     Active Substance: TRAMADOL
  29. MEROPENEM [Concomitant]
     Active Substance: MEROPENEM
     Route: 042
     Dates: start: 20190731, end: 20190804
  30. ZOSYN [Concomitant]
     Active Substance: PIPERACILLIN SODIUM\TAZOBACTAM SODIUM
     Route: 042
     Dates: start: 20190731, end: 20190806
  31. PHENOL [Concomitant]
     Active Substance: PHENOL
     Indication: Dysphagia
     Route: 048
     Dates: start: 20190731, end: 20190805
  32. DEXTRAN;HYPROMELLOSE [Concomitant]
     Indication: Lacrimation increased
     Dates: start: 20190809
  33. UDENYCA [Concomitant]
     Active Substance: PEGFILGRASTIM-CBQV
     Route: 058
     Dates: start: 20190829, end: 20190829
  34. ACETAMINOPHEN [Concomitant]
     Active Substance: ACETAMINOPHEN
     Route: 048
     Dates: start: 20190610, end: 20190826
  35. HUMAN RED BLOOD CELL [Concomitant]
     Active Substance: HUMAN RED BLOOD CELL
     Indication: Anaemia
     Route: 042
     Dates: start: 20190903, end: 20190903
  36. PLATELETS [Concomitant]
     Active Substance: HUMAN PLATELET, ALLOGENIC
     Indication: Platelet count decreased
     Dosage: 1 UNIT
     Route: 042
     Dates: start: 20190904, end: 20190914
  37. DIPHENHYDRAMINE [Concomitant]
     Active Substance: DIPHENHYDRAMINE
     Route: 048
     Dates: start: 20190610, end: 20190826
  38. HYDROCORTISONE SODIUM SUCCINATE [Concomitant]
     Active Substance: HYDROCORTISONE SODIUM SUCCINATE
     Route: 042
     Dates: start: 20190610, end: 20190826

REACTIONS (4)
  - Sepsis [Recovered/Resolved]
  - Gastrointestinal haemorrhage [Recovered/Resolved]
  - Stomatitis [Recovered/Resolved]
  - Confusional state [Recovered/Resolved]

NARRATIVE: CASE EVENT DATE: 20190731
